FAERS Safety Report 8720233 (Version 2)
Quarter: 2012Q4

REPORT INFORMATION
  Report Type: Report from Study
  Country: RU (occurrence: RU)
  Receive Date: 20120813
  Receipt Date: 20121001
  Transmission Date: 20130627
  Serious: Yes (Other)
  Sender: FDA-Public Use
  Company Number: RU-BAXTER-2011BH021109

PATIENT
  Age: 22 Year
  Sex: Male
  Weight: 83 kg

DRUGS (3)
  1. FEIBA NF [Suspect]
     Indication: HEMOPHILIA A
     Dosage: Additional lot # VNF2J022;VNF2J019 and VNF2L001
     Route: 042
     Dates: start: 20100625, end: 20110618
  2. FEIBA NF [Suspect]
     Indication: FACTOR VIII INHIBITION
     Route: 042
     Dates: start: 20110618, end: 20110618
  3. FEIBA NF [Suspect]
     Indication: BLEEDING

REACTIONS (1)
  - Hepatitis B surface antibody positive [Not Recovered/Not Resolved]
